FAERS Safety Report 12380882 (Version 1)
Quarter: 2016Q2

REPORT INFORMATION
  Report Type: Spontaneous
  Country: AR (occurrence: AR)
  Receive Date: 20160518
  Receipt Date: 20160518
  Transmission Date: 20160815
  Serious: Yes (Hospitalization, Other)
  Sender: FDA-Public Use
  Company Number: PHHY2016AR055703

PATIENT
  Sex: Male

DRUGS (2)
  1. TASIGNA [Suspect]
     Active Substance: NILOTINIB
     Indication: CHRONIC MYELOID LEUKAEMIA
     Dosage: 400 MG, UNK
     Route: 065
     Dates: start: 201002
  2. TASIGNA [Suspect]
     Active Substance: NILOTINIB
     Dosage: 400 MG, UNK
     Route: 065
     Dates: start: 20101210, end: 20160422

REACTIONS (10)
  - Dizziness [Unknown]
  - Sensory loss [Unknown]
  - Peripheral arterial occlusive disease [Unknown]
  - Basilar artery occlusion [Unknown]
  - Cerebral infarction [Recovering/Resolving]
  - Vertigo [Unknown]
  - Hypokinesia [Unknown]
  - No therapeutic response [Recovering/Resolving]
  - Cerebral artery stenosis [Unknown]
  - Transient ischaemic attack [Unknown]

NARRATIVE: CASE EVENT DATE: 2013
